FAERS Safety Report 8865570 (Version 1)
Quarter: 2012Q4

REPORT INFORMATION
  Report Type: 
  Country: US (occurrence: US)
  Receive Date: 20121024
  Receipt Date: 20121024
  Transmission Date: 20130627
  Serious: No
  Sender: FDA-Public Use
  Company Number: US-AMGEN-USASP2012003562

PATIENT
  Age: 59 Year
  Sex: Female
  Weight: 90.7 kg

DRUGS (18)
  1. ENBREL [Suspect]
     Indication: PRODUCT USED FOR UNKNOWN INDICATION
     Dosage: 50 mg, qwk
  2. OMEPRAZOLE [Concomitant]
     Dosage: 20 mg, UNK
  3. GLYBURIDE [Concomitant]
     Dosage: 5 mg, UNK
  4. METFORMIN [Concomitant]
     Dosage: 1000 mg, UNK
  5. METHOTREXATE [Concomitant]
     Dosage: 2.5 mg, UNK
  6. LIPITOR [Concomitant]
     Dosage: 40 mg, UNK
  7. CELEBREX [Concomitant]
     Dosage: 200 mg, UNK
  8. LEVOTHYROXIN [Concomitant]
     Dosage: 112 UNK, UNK
  9. FOLIC ACID [Concomitant]
     Dosage: 1 mg, UNK
  10. SULFAZINE [Concomitant]
     Dosage: 500 mg, UNK
  11. HYZAAR [Concomitant]
     Dosage: 12.5 mg, UNK
  12. METOPROLOL [Concomitant]
     Dosage: 50 mg, UNK
  13. COLCHICINE [Concomitant]
     Dosage: 0.6 mg, UNK
  14. BABY ASPIRIN [Concomitant]
     Dosage: 81 mg, UNK
  15. ZOLPIDEM [Concomitant]
     Dosage: 10 mg, UNK
  16. MULTIVITAMINS [Concomitant]
  17. IRON [Concomitant]
     Dosage: 325 mg, UNK
  18. APAP W/HYDROCODONE [Concomitant]
     Dosage: 500 mg, UNK

REACTIONS (2)
  - Myalgia [Unknown]
  - Injection site pain [Unknown]
